FAERS Safety Report 22255484 (Version 1)
Quarter: 2023Q2

REPORT INFORMATION
  Report Type: Spontaneous
  Country: FR (occurrence: FR)
  Receive Date: 20230426
  Receipt Date: 20230426
  Transmission Date: 20230722
  Serious: Yes (Life-Threatening)
  Sender: FDA-Public Use
  Company Number: None

PATIENT
  Age: 23 Year
  Sex: Female
  Weight: 59 kg

DRUGS (12)
  1. FILGRASTIM [Suspect]
     Active Substance: FILGRASTIM
     Indication: Prophylaxis
     Dosage: 300 UG, 1 TOTAL
     Route: 058
     Dates: start: 20230327, end: 20230327
  2. CYTARABINE [Suspect]
     Active Substance: CYTARABINE
     Indication: Acute myeloid leukaemia
     Dosage: 40 MG, 1 TOTAL
     Route: 037
     Dates: start: 20230320, end: 20230320
  3. CYTARABINE [Suspect]
     Active Substance: CYTARABINE
     Dosage: 3000 MG, 1 TOTAL
     Route: 042
     Dates: start: 20230328, end: 20230328
  4. ALLOPURINOL [Suspect]
     Active Substance: ALLOPURINOL
     Indication: Prophylaxis
     Dosage: 600 MG, 1 TOTAL
     Route: 048
     Dates: start: 20230328, end: 20230328
  5. MORPHINE [Suspect]
     Active Substance: MORPHINE
     Indication: Abdominal pain
     Dosage: UNK
     Route: 042
     Dates: start: 20230328, end: 20230328
  6. NEFOPAM HYDROCHLORIDE [Suspect]
     Active Substance: NEFOPAM HYDROCHLORIDE
     Indication: Pain
     Dosage: 20 MG, 1 TOTAL
     Route: 042
     Dates: start: 20230328, end: 20230328
  7. PHLOROGLUCINOL [Suspect]
     Active Substance: PHLOROGLUCINOL
     Indication: Abdominal pain
     Dosage: 160 MG, 1 TOTAL
     Route: 042
     Dates: start: 20230328, end: 20230328
  8. CLADRIBINE [Suspect]
     Active Substance: CLADRIBINE
     Indication: Acute myeloid leukaemia
     Dosage: 8 MG, 1 TOTAL
     Route: 042
     Dates: start: 20230328, end: 20230328
  9. DEXAMETHASONE [Concomitant]
     Active Substance: DEXAMETHASONE
     Indication: Product used for unknown indication
     Dosage: 40 MG, 1 TOTAL
     Route: 037
     Dates: start: 20230320, end: 20230320
  10. METOCLOPRAMIDE [Concomitant]
     Active Substance: METOCLOPRAMIDE
     Indication: Product used for unknown indication
     Dosage: UNK
     Route: 042
     Dates: start: 20230328, end: 20230328
  11. METHOTREXATE [Concomitant]
     Active Substance: METHOTREXATE
     Indication: Product used for unknown indication
     Dosage: 15 MG, 1 TOTAL
     Route: 037
     Dates: start: 20230320, end: 20230320
  12. ONDANSETRON [Concomitant]
     Active Substance: ONDANSETRON
     Indication: Product used for unknown indication
     Dosage: 8 MG, 1 TOTAL
     Route: 042
     Dates: start: 20230328, end: 20230328

REACTIONS (1)
  - Shock [Recovered/Resolved]

NARRATIVE: CASE EVENT DATE: 20230328
